FAERS Safety Report 4319115-1 (Version None)
Quarter: 2004Q1

REPORT INFORMATION
  Report Type: 
  Country: None (occurrence: None)
  Receive Date: 20040318
  Receipt Date: 20040318
  Transmission Date: 20041129
  Serious: Yes (Hospitalization)
  Sender: FDA-Public Use
  Company Number: None

PATIENT
  Age: 56 Year
  Sex: Male
  Weight: 116 kg

DRUGS (1)
  1. ENOXAPARIN SODIUM [Suspect]
     Indication: MYOCARDIAL INFARCTION
     Dosage: 100 MG Q12HSUBCUTANEOUS
     Route: 058
     Dates: start: 20040121, end: 20040122

REACTIONS (1)
  - HEPARIN-INDUCED THROMBOCYTOPENIA [None]
